FAERS Safety Report 10108626 (Version 3)
Quarter: 2014Q2

REPORT INFORMATION
  Report Type: Report from Study
  Country: US (occurrence: US)
  Receive Date: 20140425
  Receipt Date: 20140530
  Transmission Date: 20141212
  Serious: Yes (Hospitalization)
  Sender: FDA-Public Use
  Company Number: US-BIOGENIDEC-2014BI037786

PATIENT
  Age: 60 Year
  Sex: Female

DRUGS (4)
  1. TYSABRI [Suspect]
     Indication: MULTIPLE SCLEROSIS
     Route: 042
     Dates: start: 200704, end: 200804
  2. TYSABRI [Suspect]
     Indication: MULTIPLE SCLEROSIS
     Route: 042
     Dates: start: 200808
  3. AVONEX [Concomitant]
     Indication: MULTIPLE SCLEROSIS
     Route: 030
     Dates: start: 19990301
  4. AVONEX [Concomitant]
     Indication: MULTIPLE SCLEROSIS
     Route: 030
     Dates: start: 20080626

REACTIONS (7)
  - Anaemia [Unknown]
  - Malnutrition [Unknown]
  - Pneumonia bacterial [Recovered/Resolved]
  - Urinary tract infection pseudomonal [Unknown]
  - Encephalopathy [Recovered/Resolved]
  - Loss of consciousness [Recovered/Resolved]
  - Pneumonia [Recovered/Resolved]
